FAERS Safety Report 10456820 (Version 1)
Quarter: 2014Q3

REPORT INFORMATION
  Report Type: Spontaneous
  Country: US (occurrence: US)
  Receive Date: 20140916
  Receipt Date: 20140916
  Transmission Date: 20150326
  Serious: No
  Sender: FDA-Public Use
  Company Number: US-009507513-1409USA006343

PATIENT
  Sex: Female

DRUGS (2)
  1. A AND D [Suspect]
     Active Substance: DIMETHICONE\PETROLATUM\ZINC OXIDE
     Indication: DERMATITIS DIAPER
  2. A AND D [Suspect]
     Active Substance: DIMETHICONE\PETROLATUM\ZINC OXIDE
     Indication: PRODUCT USED FOR UNKNOWN INDICATION
     Dosage: UNK, UNKNOWN
     Route: 061

REACTIONS (2)
  - Drug ineffective [Unknown]
  - Incorrect drug administration duration [Unknown]
